FAERS Safety Report 4404135-9 (Version None)
Quarter: 2004Q3

REPORT INFORMATION
  Report Type: 
  Country: None (occurrence: None)
  Receive Date: 20040719
  Receipt Date: 20040701
  Transmission Date: 20050211
  Serious: Yes (Death)
  Sender: FDA-Public Use
  Company Number: DSA_24622_2004

PATIENT
  Age: 38 Year
  Sex: Female

DRUGS (3)
  1. LORAZEPAM [Suspect]
     Dates: end: 20040117
  2. ALCOHOL [Suspect]
     Dates: end: 20040117
  3. RISPERDAL [Suspect]
     Dates: end: 20040117

REACTIONS (3)
  - ALCOHOL USE [None]
  - INTENTIONAL OVERDOSE [None]
  - MULTIPLE DRUG OVERDOSE [None]
